FAERS Safety Report 11444705 (Version 1)
Quarter: 2015Q3

REPORT INFORMATION
  Report Type: Spontaneous
  Country: US (occurrence: None)
  Receive Date: 20150831
  Receipt Date: 20150831
  Transmission Date: 20151125
  Serious: Yes (Death)
  Sender: FDA-Public Use
  Company Number: CC400267697

PATIENT
  Age: 85 Year
  Sex: Male

DRUGS (1)
  1. HEPARIN [Suspect]
     Active Substance: HEPARIN SODIUM
     Indication: CAROTID ARTERY OCCLUSION

REACTIONS (7)
  - Subdural haematoma [None]
  - Mental status changes [None]
  - General physical health deterioration [None]
  - Decerebrate posture [None]
  - Brain midline shift [None]
  - Neurological decompensation [None]
  - Mydriasis [None]
